FAERS Safety Report 5232242-X (Version None)
Quarter: 2007Q1

REPORT INFORMATION
  Report Type: 
  Country: None (occurrence: None)
  Receive Date: 20070207
  Receipt Date: 20070125
  Transmission Date: 20070707
  Serious: Yes (Hospitalization)
  Sender: FDA-Public Use
  Company Number: PHBS2007JP01716

PATIENT

DRUGS (3)
  1. TEGRETOL [Suspect]
     Route: 048
  2. RIVOTRIL [Concomitant]
     Route: 065
  3. EXCEGRAN [Concomitant]
     Route: 065

REACTIONS (5)
  - DRUG ERUPTION [None]
  - HYPOGAMMAGLOBULINAEMIA [None]
  - IMMUNODEFICIENCY [None]
  - LYMPHOCYTE STIMULATION TEST POSITIVE [None]
  - PYREXIA [None]
